FAERS Safety Report 5313603-7 (Version None)
Quarter: 2007Q2

REPORT INFORMATION
  Report Type: 
  Country: None (occurrence: None)
  Receive Date: 20070425
  Receipt Date: 20070412
  Transmission Date: 20071010
  Serious: Yes (Other)
  Sender: FDA-Public Use
  Company Number: S07-FRA-01451-01

PATIENT
  Age: 80 Year
  Sex: Male

DRUGS (1)
  1. EBIXA (MEMANTINE HYDROCHLORIDE) [Suspect]
     Indication: DEMENTIA ALZHEIMER'S TYPE
     Dates: end: 20070301

REACTIONS (3)
  - CREATININE RENAL CLEARANCE DECREASED [None]
  - OEDEMA PERIPHERAL [None]
  - WEIGHT INCREASED [None]
